FAERS Safety Report 23285779 (Version 1)
Quarter: 2023Q4

REPORT INFORMATION
  Report Type: Spontaneous
  Country: None (occurrence: GB)
  Receive Date: 20231212
  Receipt Date: 20231212
  Transmission Date: 20240109
  Serious: Yes (Hospitalization, Other)
  Sender: FDA-Public Use
  Company Number: GB-B.Braun Medical Inc.-2149251

PATIENT
  Sex: Male

DRUGS (5)
  1. ACETAMINOPHEN [Suspect]
     Active Substance: ACETAMINOPHEN
  2. CLOZARIL [Concomitant]
     Active Substance: CLOZAPINE
  3. LORAZEPAM [Concomitant]
     Active Substance: LORAZEPAM
  4. OLANZAPINE [Concomitant]
     Active Substance: OLANZAPINE
  5. PROMETHAZINE [Concomitant]
     Active Substance: PROMETHAZINE HYDROCHLORIDE

REACTIONS (3)
  - Schizophrenia [None]
  - Sedation [None]
  - Off label use [None]
